FAERS Safety Report 22618190 (Version 1)
Quarter: 2023Q2

REPORT INFORMATION
  Report Type: Other
  Country: ES (occurrence: ES)
  Receive Date: 20230620
  Receipt Date: 20230620
  Transmission Date: 20230722
  Serious: Yes (Hospitalization)
  Sender: FDA-Public Use
  Company Number: None

PATIENT

DRUGS (5)
  1. OMEPRAZOLE [Interacting]
     Active Substance: OMEPRAZOLE
     Indication: Suicide attempt
     Dosage: UNK, 2 BLISTER
     Route: 048
     Dates: start: 20230603, end: 20230603
  2. ACETAMINOPHEN [Interacting]
     Active Substance: ACETAMINOPHEN
     Indication: Suicide attempt
     Dosage: 20 GRAM, 1 TOTAL
     Route: 048
     Dates: start: 20230603, end: 20230603
  3. AMOXICILLIN [Interacting]
     Active Substance: AMOXICILLIN
     Indication: Suicide attempt
     Dosage: UNK,4 BLISTER
     Route: 048
     Dates: start: 20230603, end: 20230603
  4. ALPRAZOLAM [Interacting]
     Active Substance: ALPRAZOLAM
     Indication: Suicide attempt
     Dosage: UNK, 1 BLISTER
     Route: 048
     Dates: start: 20230603, end: 20230603
  5. JANUMET [Interacting]
     Active Substance: METFORMIN HYDROCHLORIDE\SITAGLIPTIN PHOSPHATE
     Indication: Suicide attempt
     Dosage: 40 DOSAGE FORM, TOTAL
     Route: 048
     Dates: start: 20230603, end: 20230603

REACTIONS (2)
  - Hyperlactacidaemia [Recovered/Resolved]
  - Acute kidney injury [Recovered/Resolved]

NARRATIVE: CASE EVENT DATE: 20230603
